FAERS Safety Report 5333825-9 (Version None)
Quarter: 2007Q2

REPORT INFORMATION
  Report Type: 
  Country: None (occurrence: None)
  Receive Date: 20070524
  Receipt Date: 20070516
  Transmission Date: 20071010
  Serious: Yes (Hospitalization, Disabling)
  Sender: FDA-Public Use
  Company Number: FI-ASTRAZENECA-2006SE01843

PATIENT
  Age: 995 Month
  Sex: Male

DRUGS (11)
  1. ZOLADEX [Suspect]
     Indication: PROSTATE CANCER
     Dosage: INTERMITTENT TREATMENT
     Route: 058
     Dates: start: 20020320
  2. ANDROCUR [Suspect]
     Indication: PROSTATE CANCER
     Route: 048
     Dates: start: 20020320, end: 20020401
  3. EMCONCOR [Concomitant]
     Indication: HYPERTENSION
     Route: 048
     Dates: start: 19960101
  4. COZAAR [Concomitant]
     Indication: HYPERTENSION
     Route: 048
     Dates: start: 20031203
  5. TREXAN [Concomitant]
     Indication: ARTHRITIS
     Dosage: ADMINISTRATED FOUR TIMES/WEEK
     Route: 048
     Dates: start: 20021201
  6. FOLVITE [Concomitant]
     Indication: ARTHRITIS
     Dosage: ADMINISTRATED FOUR TIMES/WEEK
     Route: 048
     Dates: start: 20021107
  7. LANSOPRAZOLE [Concomitant]
     Indication: GASTRITIS
     Route: 048
     Dates: start: 20021203
  8. ATROVENT [Concomitant]
     Indication: DYSPNOEA
     Route: 055
     Dates: start: 19980101
  9. PULMICORT [Concomitant]
     Indication: DYSPNOEA
     Route: 055
     Dates: start: 19980101
  10. BISOPROLOL FUMARATE [Concomitant]
     Indication: HYPERTENSION
     Route: 048
     Dates: start: 19960101
  11. ARICEPT [Concomitant]
     Indication: DEMENTIA ALZHEIMER'S TYPE
     Route: 048
     Dates: start: 20050101

REACTIONS (1)
  - FOOT FRACTURE [None]
